FAERS Safety Report 15114199 (Version 1)
Quarter: 2018Q3

REPORT INFORMATION
  Report Type: Spontaneous
  Country: None (occurrence: US)
  Receive Date: 20180706
  Receipt Date: 20180706
  Transmission Date: 20181010
  Serious: No
  Sender: FDA-Public Use
  Company Number: US-X-GEN PHARMACEUTICALS, INC-2051498

PATIENT

DRUGS (1)
  1. CLONIDINE HYDROCHLORIDE INJECTION [Suspect]
     Active Substance: CLONIDINE HYDROCHLORIDE

REACTIONS (1)
  - Nervous system disorder [Not Recovered/Not Resolved]

NARRATIVE: CASE EVENT DATE: 20180618
